FAERS Safety Report 7062307-1 (Version None)
Quarter: 2010Q4

REPORT INFORMATION
  Report Type: 
  Country: None (occurrence: None)
  Receive Date: 20101026
  Receipt Date: 20101013
  Transmission Date: 20110411
  Serious: Yes (Hospitalization, Other)
  Sender: FDA-Public Use
  Company Number: US-AMGEN GMBH-QUU442215

PATIENT

DRUGS (10)
  1. NPLATE [Suspect]
     Indication: IDIOPATHIC THROMBOCYTOPENIC PURPURA
     Dosage: 1 A?G/KG, UNK
     Dates: start: 20100510, end: 20100621
  2. NPLATE [Suspect]
     Dates: start: 20100426, end: 20100621
  3. RITUXIMAB [Concomitant]
     Dosage: UNK UNK, UNK
     Dates: start: 20090817
  4. LIDODERM [Suspect]
     Dosage: UNK UNK, TID
     Dates: start: 20100701
  5. METOPROLOL [Suspect]
     Dosage: 50 MG, BID
  6. AMLODIPINE [Suspect]
     Dosage: 2.5 MG, QD
  7. MULTIVITAMIN                       /00097801/ [Concomitant]
     Dosage: UNK UNK, QD
  8. SPIRIVA [Concomitant]
     Dosage: 18 A?G, QD
     Route: 055
  9. ALBUTEROL [Concomitant]
     Dosage: UNK UNK, PRN
     Route: 055
  10. ADVAIR DISKUS 100/50 [Concomitant]
     Dosage: UNK UNK, QD
     Route: 055

REACTIONS (9)
  - ALCOHOL POISONING [None]
  - CARDIAC DISORDER [None]
  - CHEST PAIN [None]
  - ECCHYMOSIS [None]
  - ELECTROLYTE IMBALANCE [None]
  - FALL [None]
  - NON-HODGKIN'S LYMPHOMA [None]
  - PLATELET COUNT DECREASED [None]
  - RIB FRACTURE [None]
